FAERS Safety Report 7019071-1 (Version None)
Quarter: 2010Q3

REPORT INFORMATION
  Report Type: 
  Country: None (occurrence: None)
  Receive Date: 20100928
  Receipt Date: 20100923
  Transmission Date: 20110219
  Serious: Yes (Other)
  Sender: FDA-Public Use
  Company Number: A0882964A

PATIENT
  Age: 67 Year
  Sex: Male

DRUGS (5)
  1. ADVAIR DISKUS 100/50 [Suspect]
     Indication: ASTHMA
     Dosage: 1PUFF TWICE PER DAY
     Route: 055
     Dates: start: 20050101
  2. PLAVIX [Concomitant]
  3. BYSTOLIC [Concomitant]
  4. LOVAZA [Concomitant]
  5. ASPIRIN [Concomitant]

REACTIONS (2)
  - CARDIAC FIBRILLATION [None]
  - EXERCISE TOLERANCE DECREASED [None]
